FAERS Safety Report 23509968 (Version 2)
Quarter: 2024Q3

REPORT INFORMATION
  Report Type: Spontaneous
  Country: US (occurrence: US)
  Receive Date: 20240211
  Receipt Date: 20240705
  Transmission Date: 20241017
  Serious: No
  Sender: SANOFI AVENTIS
  Company Number: US-SA-SAC20240205000394

PATIENT
  Sex: Female
  Weight: 81.6 kg

DRUGS (2)
  1. DUPIXENT [Suspect]
     Active Substance: DUPILUMAB
     Indication: Dermatitis atopic
     Dosage: 300 MG, QOW
     Route: 058
  2. TRIAMCINOLONE ACETONIDE [Concomitant]
     Active Substance: TRIAMCINOLONE ACETONIDE

REACTIONS (4)
  - Dermatitis atopic [Unknown]
  - Dry skin [Unknown]
  - Pruritus [Unknown]
  - Maternal exposure during pregnancy [Unknown]
